FAERS Safety Report 12970420 (Version 6)
Quarter: 2017Q1

REPORT INFORMATION
  Report Type: Report from Study
  Country: None (occurrence: GR)
  Receive Date: 20161123
  Receipt Date: 20170102
  Transmission Date: 20170428
  Serious: Yes (Hospitalization)
  Sender: FDA-Public Use
  Company Number: GR-ABBVIE-16K-066-1784259-00

PATIENT
  Age: 55 Year
  Sex: Male

DRUGS (5)
  1. MADOPAR [Concomitant]
     Active Substance: BENSERAZIDE HYDROCHLORIDE\LEVODOPA
     Indication: PRODUCT USED FOR UNKNOWN INDICATION
     Route: 048
  2. DUMYROX [Concomitant]
     Indication: PRODUCT USED FOR UNKNOWN INDICATION
     Route: 048
  3. EXELON [Concomitant]
     Active Substance: RIVASTIGMINE TARTRATE
     Indication: PRODUCT USED FOR UNKNOWN INDICATION
     Route: 048
  4. DUODOPA [Suspect]
     Active Substance: CARBIDOPA\LEVODOPA
     Indication: PARKINSON^S DISEASE
     Dosage: MORNING DOSE: 7.5 ML; CONTINUOUS RATE: 2.9 ML/H; EXTRA DOSE: 1.0 ML
     Route: 050
     Dates: start: 20161101, end: 20161114
  5. DUODOPA [Suspect]
     Active Substance: CARBIDOPA\LEVODOPA
     Dosage: MORNING DOSE: 7.5ML; CONTINUOUS RATE: 2.0ML/H; EXTRA DOSE: 1.0ML
     Route: 050
     Dates: start: 20161223

REACTIONS (10)
  - Pyrexia [Recovering/Resolving]
  - Chills [Recovered/Resolved]
  - Inflammation [Not Recovered/Not Resolved]
  - Respiratory tract infection [Not Recovered/Not Resolved]
  - Ileus paralytic [Recovering/Resolving]
  - Pneumonia aspiration [Recovered/Resolved]
  - Flatulence [Not Recovered/Not Resolved]
  - Pseudomembranous colitis [Recovering/Resolving]
  - Abdominal distension [Not Recovered/Not Resolved]
  - Device issue [Unknown]

NARRATIVE: CASE EVENT DATE: 20161114
